FAERS Safety Report 13135544 (Version 1)
Quarter: 2017Q1

REPORT INFORMATION
  Report Type: Spontaneous
  Country: US (occurrence: US)
  Receive Date: 20170120
  Receipt Date: 20170120
  Transmission Date: 20170428
  Serious: Yes (Other)
  Sender: FDA-Public Use
  Company Number: US-009507513-1701USA007369

PATIENT
  Age: 23 Year
  Sex: Female

DRUGS (1)
  1. TEMODAR [Suspect]
     Active Substance: TEMOZOLOMIDE
     Indication: RADIOTHERAPY
     Dosage: UNK
     Route: 048

REACTIONS (2)
  - Bone marrow failure [Unknown]
  - Product use issue [Unknown]
